FAERS Safety Report 18636774 (Version 8)
Quarter: 2021Q1

REPORT INFORMATION
  Report Type: Report from Study
  Country: CN (occurrence: CN)
  Receive Date: 20201218
  Receipt Date: 20210316
  Transmission Date: 20210419
  Serious: Yes (Other)
  Sender: FDA-Public Use
  Company Number: CN-ASTELLAS-2020US043430

PATIENT
  Age: 74 Year
  Sex: Male
  Weight: 57 kg

DRUGS (9)
  1. METOPROLOL SUCCINATE. [Concomitant]
     Active Substance: METOPROLOL SUCCINATE
     Indication: HYPERTENSION
     Dosage: 47.5 MG, ONCE DAILY (SUSTAINED RELEASED TABLET)
     Route: 048
     Dates: start: 20201104, end: 20201123
  2. DIAMMONIUM GLYCYRRHIZINATE [Concomitant]
     Active Substance: HERBALS\DIAMMONIUM GLYCYRRHIZINATE
     Indication: LIVER INJURY
     Route: 048
     Dates: start: 20201201, end: 20201206
  3. ENZALUTAMIDE [Suspect]
     Active Substance: ENZALUTAMIDE
     Indication: PROSTATE CANCER
     Dosage: UNK UNK, ONCE DAILY
     Route: 048
     Dates: start: 20201023, end: 20201208
  4. DEGARELIX [Suspect]
     Active Substance: DEGARELIX
     Indication: PROSTATE CANCER
     Dosage: 240 MG, ONCE
     Route: 030
     Dates: start: 20201023, end: 20201023
  5. DICLOFENAC SODIUM. [Concomitant]
     Active Substance: DICLOFENAC SODIUM
     Indication: PAIN
     Dosage: 50 MG, TWICE DAILY (SUSTAINED RELEASE CAPSULE)
     Route: 048
     Dates: start: 202009, end: 20201123
  6. ENZALUTAMIDE [Suspect]
     Active Substance: ENZALUTAMIDE
     Dosage: UNK UNK, ONCE DAILY (REDUCED DOSE)
     Route: 048
     Dates: start: 20201231, end: 20210202
  7. DEGARELIX [Suspect]
     Active Substance: DEGARELIX
     Dosage: 80 MG, ONCE/4 WEEKS
     Route: 030
     Dates: start: 20201123
  8. NIFEDIPINE. [Concomitant]
     Active Substance: NIFEDIPINE
     Indication: HYPERTENSION
     Dosage: 30 MG, ONCE DAILY (CONTROLLED RELEASE TABLETS)
     Route: 048
     Dates: start: 20201104, end: 20201123
  9. ENZALUTAMIDE [Suspect]
     Active Substance: ENZALUTAMIDE
     Dosage: UNK UNK, ONCE DAILY (DOSE RESTORED)
     Route: 048
     Dates: start: 20210202, end: 20210202

REACTIONS (1)
  - Drug-induced liver injury [Recovered/Resolved]

NARRATIVE: CASE EVENT DATE: 20201207
